FAERS Safety Report 5151206-8 (Version None)
Quarter: 2006Q4

REPORT INFORMATION
  Report Type: 
  Country: None (occurrence: None)
  Receive Date: 20061114
  Receipt Date: 20061114
  Transmission Date: 20070319
  Serious: Yes (Other)
  Sender: FDA-Public Use
  Company Number: None

PATIENT
  Age: 65 Year
  Sex: Male
  Weight: 66 kg

DRUGS (9)
  1. GADOLINIUM [Suspect]
     Indication: NUCLEAR MAGNETIC RESONANCE IMAGING BRAIN
     Dosage: TWICE/THREE MONTHS  IV
     Route: 042
     Dates: start: 20050401, end: 20050401
  2. GADOLINIUM [Suspect]
     Indication: NUCLEAR MAGNETIC RESONANCE IMAGING BRAIN
     Dosage: TWICE/THREE MONTHS  IV
     Route: 042
     Dates: start: 20050610, end: 20050610
  3. WARFARIN SODIUM [Concomitant]
  4. ASPIRIN [Concomitant]
  5. PANTOPRAZOLO [Concomitant]
  6. SEVELAMER [Concomitant]
  7. ATORVASTATINA [Concomitant]
  8. CALCIUM CARBONATE [Concomitant]
  9. ALFA EPOETINA [Concomitant]

REACTIONS (2)
  - NEPHROGENIC FIBROSING DERMOPATHY [None]
  - POST PROCEDURAL COMPLICATION [None]
